FAERS Safety Report 25300003 (Version 1)
Quarter: 2025Q2

REPORT INFORMATION
  Report Type: Spontaneous
  Country: GR (occurrence: GR)
  Receive Date: 20250512
  Receipt Date: 20250512
  Transmission Date: 20250716
  Serious: Yes (Other)
  Sender: MYLAN
  Company Number: GR-MYLANLABS-2025M1036963

PATIENT
  Age: 90 Year
  Sex: Female

DRUGS (6)
  1. CARDURA [Suspect]
     Active Substance: DOXAZOSIN MESYLATE
     Indication: Product used for unknown indication
     Dosage: 1 MILLIGRAM, QD (CUTTING THE 2 MG TABLET)
  2. FENTANYL [Suspect]
     Active Substance: FENTANYL
     Indication: Product used for unknown indication
  3. MEDROL [Suspect]
     Active Substance: METHYLPREDNISOLONE
     Indication: Product used for unknown indication
  4. ACETAMINOPHEN [Suspect]
     Active Substance: ACETAMINOPHEN
     Indication: Product used for unknown indication
  5. SINTROM [Suspect]
     Active Substance: ACENOCOUMAROL
     Indication: Product used for unknown indication
  6. LASIX [Concomitant]
     Active Substance: FUROSEMIDE
     Dosage: UNK, QD

REACTIONS (12)
  - Pancreatitis [Unknown]
  - Hypotonia [Unknown]
  - Investigation abnormal [Unknown]
  - C-reactive protein increased [Recovered/Resolved]
  - Fluid retention [Unknown]
  - Oxygen saturation decreased [Unknown]
  - Wrong technique in product usage process [Unknown]
  - Haemodilution [Unknown]
  - Hepatic function abnormal [Unknown]
  - Dyspnoea [Unknown]
  - Abdominal pain [Unknown]
  - Amylase increased [Unknown]
